FAERS Safety Report 5214019-4 (Version None)
Quarter: 2007Q1

REPORT INFORMATION
  Report Type: 
  Country: None (occurrence: None)
  Receive Date: 20070122
  Receipt Date: 20070117
  Transmission Date: 20070707
  Serious: Yes (Death)
  Sender: FDA-Public Use
  Company Number: US-ELI_LILLY_AND_COMPANY-US200608005336

PATIENT
  Age: 48 Year
  Sex: Female
  Weight: 90.702 kg

DRUGS (1)
  1. ZYPREXA [Suspect]
     Dates: start: 20040101

REACTIONS (2)
  - DEATH [None]
  - DIABETES MELLITUS [None]
